FAERS Safety Report 8982913 (Version 1)
Quarter: 2012Q4

REPORT INFORMATION
  Report Type: 
  Country: US (occurrence: US)
  Receive Date: 20121224
  Receipt Date: 20121224
  Transmission Date: 20130627
  Serious: Yes (Other)
  Sender: FDA-Public Use
  Company Number: US-PFIZER INC-2012321876

PATIENT
  Age: 69 Year
  Sex: Male

DRUGS (1)
  1. REVATIO [Suspect]
     Indication: PRIMARY PULMONARY HYPERTENSION
     Dosage: 20 mg, 3x/day
     Dates: start: 20120920

REACTIONS (2)
  - Lung disorder [Unknown]
  - General physical health deterioration [Unknown]
